FAERS Safety Report 9239146 (Version 1)
Quarter: 2013Q2

REPORT INFORMATION
  Report Type: Spontaneous
  Country: FR (occurrence: FR)
  Receive Date: 20130418
  Receipt Date: 20130418
  Transmission Date: 20140414
  Serious: Yes (Hospitalization)
  Sender: FDA-Public Use
  Company Number: FR-UCBSA-083058

PATIENT
  Age: 15 Year
  Sex: Male

DRUGS (6)
  1. KEPPRA [Suspect]
     Indication: EPILEPSY
  2. GARDENAL [Suspect]
     Indication: EPILEPSY
     Dates: start: 20130313, end: 20130326
  3. RIVOTRIL [Suspect]
     Indication: EPILEPSY
     Dates: start: 20130311
  4. DEPAKINE [Suspect]
     Indication: EPILEPSY
  5. TEGRETOL [Suspect]
     Indication: EPILEPSY
  6. LAMICTAL [Suspect]
     Indication: EPILEPSY

REACTIONS (4)
  - Rash pustular [Not Recovered/Not Resolved]
  - Generalised erythema [Not Recovered/Not Resolved]
  - Acute generalised exanthematous pustulosis [Not Recovered/Not Resolved]
  - Epilepsy [Not Recovered/Not Resolved]
